FAERS Safety Report 13145755 (Version 1)
Quarter: 2017Q1

REPORT INFORMATION
  Report Type: Spontaneous
  Country: NO (occurrence: NO)
  Receive Date: 20170124
  Receipt Date: 20170124
  Transmission Date: 20170428
  Serious: Yes (Life-Threatening, Hospitalization)
  Sender: FDA-Public Use
  Company Number: NO-IMPAX LABORATORIES, INC-2017-IPXL-00064

PATIENT
  Age: 40 Year
  Sex: Female

DRUGS (2)
  1. OMEPRAZOLE DELAYED RELEASE [Suspect]
     Active Substance: OMEPRAZOLE
     Indication: PRODUCT USED FOR UNKNOWN INDICATION
     Dosage: 20-40 MG, DAILY
     Route: 065
  2. ATORVASTATIN [Concomitant]
     Active Substance: ATORVASTATIN
     Indication: PRODUCT USED FOR UNKNOWN INDICATION
     Dosage: 20 MG, DAILY
     Route: 065

REACTIONS (9)
  - Dehydration [Unknown]
  - Loss of consciousness [Recovered/Resolved]
  - Cyanosis [Unknown]
  - Diarrhoea [Recovered/Resolved]
  - Torsade de pointes [Recovered/Resolved]
  - Acute kidney injury [Recovering/Resolving]
  - Seizure [Unknown]
  - Cardiac arrest [Unknown]
  - Hypomagnesaemia [Recovered/Resolved]
